FAERS Safety Report 5523237-7 (Version None)
Quarter: 2007Q4

REPORT INFORMATION
  Report Type: 
  Country: None (occurrence: None)
  Receive Date: 20071116
  Receipt Date: 20071116
  Transmission Date: 20080405
  Serious: Yes (Hospitalization, Other)
  Sender: FDA-Public Use
  Company Number: None

PATIENT
  Age: 69 Year
  Sex: Male
  Weight: 99 kg

DRUGS (2)
  1. CCI-779 (TEMSIROLIMUS) [Suspect]
     Indication: MULTIPLE MYELOMA
     Dosage: 15MG/M2 WEEKLY
     Dates: start: 20070612, end: 20071106
  2. VELCADE [Suspect]
     Indication: MULTIPLE MYELOMA
     Dosage: 1.3 MG/M2 WEEKLY FOR 4
     Dates: start: 20070612, end: 20071106

REACTIONS (4)
  - GASTROINTESTINAL HAEMORRHAGE [None]
  - HAEMATEMESIS [None]
  - NAUSEA [None]
  - VOMITING [None]
